FAERS Safety Report 19746792 (Version 1)
Quarter: 2021Q3

REPORT INFORMATION
  Report Type: Spontaneous
  Country: FR (occurrence: FR)
  Receive Date: 20210826
  Receipt Date: 20210826
  Transmission Date: 20211014
  Serious: Yes (Life-Threatening, Other)
  Sender: FDA-Public Use
  Company Number: FR-AUROBINDO-AUR-APL-2021-036032

PATIENT
  Age: 46 Year
  Sex: Male

DRUGS (5)
  1. DAPTOMYCINE MEDAC [Suspect]
     Active Substance: DAPTOMYCIN
     Indication: OSTEITIS
     Dosage: 750 MG/J
     Route: 042
     Dates: start: 20210628
  2. PIPERACILLINE / TAZOBACTAM MYLAN [Suspect]
     Active Substance: PIPERACILLIN SODIUM\TAZOBACTAM SODIUM
     Indication: OSTEITIS
     Dosage: 4G / 500MG EVERY 8 HOURS
     Route: 042
     Dates: start: 20210616
  3. LINEZOLID. [Suspect]
     Active Substance: LINEZOLID
     Indication: OSTEITIS
     Dosage: 600 MG X 2/J
     Route: 048
     Dates: start: 20210616
  4. BACTRIM [Suspect]
     Active Substance: SULFAMETHOXAZOLE\TRIMETHOPRIM
     Indication: OSTEITIS
     Dosage: 2 DOSAGE FORM
     Route: 048
     Dates: start: 20210625
  5. CEFEPIME [Suspect]
     Active Substance: CEFEPIME HYDROCHLORIDE
     Indication: OSTEITIS
     Dosage: 2G TOUTES LES 8 HEURES
     Route: 042
     Dates: start: 20210625

REACTIONS (1)
  - Drug reaction with eosinophilia and systemic symptoms [Recovered/Resolved]

NARRATIVE: CASE EVENT DATE: 20210710
